FAERS Safety Report 10258232 (Version 2)
Quarter: 2014Q3

REPORT INFORMATION
  Report Type: Spontaneous
  Country: US (occurrence: None)
  Receive Date: 20140623
  Receipt Date: 20140915
  Transmission Date: 20150326
  Serious: Yes (Other)
  Sender: FDA-Public Use
  Company Number: 2014-US-007444

PATIENT
  Age: 55 Year
  Sex: Female
  Weight: 72.6 kg

DRUGS (7)
  1. NEURONTIN [Concomitant]
     Active Substance: GABAPENTIN
  2. SAPHRIS [Concomitant]
     Active Substance: ASENAPINE MALEATE
  3. XYREM [Suspect]
     Active Substance: SODIUM OXYBATE
     Indication: CATAPLEXY
     Route: 048
     Dates: start: 200703, end: 200705
  4. POTASSIUM [Concomitant]
     Active Substance: POTASSIUM
  5. XYREM [Suspect]
     Active Substance: SODIUM OXYBATE
     Indication: NARCOLEPSY
     Route: 048
     Dates: start: 200703, end: 200705
  6. CYTOMEL [Concomitant]
     Active Substance: LIOTHYRONINE SODIUM
  7. SYNTHROID [Concomitant]
     Active Substance: LEVOTHYROXINE SODIUM

REACTIONS (1)
  - Multiple sclerosis [None]
